FAERS Safety Report 9903594 (Version 2)
Quarter: 2014Q1

REPORT INFORMATION
  Report Type: Spontaneous
  Country: US (occurrence: US)
  Receive Date: 20140217
  Receipt Date: 20140217
  Transmission Date: 20141002
  Serious: Yes (Hospitalization, Disabling)
  Sender: FDA-Public Use
  Company Number: US-GE HEALTHCARE MEDICAL DIAGNOSTICS-OSCN-PR-0802S-0072

PATIENT
  Age: 53 Year
  Sex: Male

DRUGS (27)
  1. OMNISCAN [Suspect]
     Indication: PRODUCT USED FOR UNKNOWN INDICATION
     Route: 042
     Dates: start: 20060617, end: 20060617
  2. MAGNEVIST [Suspect]
     Indication: PRODUCT USED FOR UNKNOWN INDICATION
     Route: 042
     Dates: start: 20060714, end: 20060714
  3. MAGNEVIST [Suspect]
     Route: 042
     Dates: start: 20060808, end: 20060808
  4. PROCARDIA XL [Concomitant]
     Indication: PRODUCT USED FOR UNKNOWN INDICATION
  5. EPOGEN [Concomitant]
     Indication: PRODUCT USED FOR UNKNOWN INDICATION
  6. TRAMADOL [Concomitant]
     Indication: PRODUCT USED FOR UNKNOWN INDICATION
  7. OXYCODONE [Concomitant]
     Indication: PRODUCT USED FOR UNKNOWN INDICATION
  8. HEPARIN [Concomitant]
     Indication: PRODUCT USED FOR UNKNOWN INDICATION
  9. EPO [Concomitant]
     Indication: PRODUCT USED FOR UNKNOWN INDICATION
  10. ASA [Concomitant]
     Indication: PRODUCT USED FOR UNKNOWN INDICATION
  11. KALETRA [Concomitant]
     Indication: PRODUCT USED FOR UNKNOWN INDICATION
  12. STAVUDINE [Concomitant]
     Indication: PRODUCT USED FOR UNKNOWN INDICATION
  13. TENOFOVIR [Concomitant]
     Indication: PRODUCT USED FOR UNKNOWN INDICATION
  14. VITAMIN B COMPLEX WITH VITAMIN C [Concomitant]
     Indication: PRODUCT USED FOR UNKNOWN INDICATION
  15. PREDNISONE [Concomitant]
     Indication: PRODUCT USED FOR UNKNOWN INDICATION
  16. ALLOPURINOL [Concomitant]
     Indication: PRODUCT USED FOR UNKNOWN INDICATION
  17. NEPHROVITE [Concomitant]
     Indication: PRODUCT USED FOR UNKNOWN INDICATION
  18. PHOSLO [Concomitant]
     Indication: PRODUCT USED FOR UNKNOWN INDICATION
  19. DOCUSATE [Concomitant]
     Indication: PRODUCT USED FOR UNKNOWN INDICATION
  20. COLCHICINE [Concomitant]
     Indication: PRODUCT USED FOR UNKNOWN INDICATION
  21. IRON [Concomitant]
     Indication: PRODUCT USED FOR UNKNOWN INDICATION
  22. FOSRENOL [Concomitant]
     Indication: PRODUCT USED FOR UNKNOWN INDICATION
  23. SENSIPAR [Concomitant]
     Indication: PRODUCT USED FOR UNKNOWN INDICATION
  24. CALCITRIOL [Concomitant]
     Indication: PRODUCT USED FOR UNKNOWN INDICATION
  25. LISINOPRIL [Concomitant]
     Indication: PRODUCT USED FOR UNKNOWN INDICATION
  26. METOPROLOL [Concomitant]
  27. STEROIDS [Concomitant]

REACTIONS (1)
  - Nephrogenic systemic fibrosis [Not Recovered/Not Resolved]
